FAERS Safety Report 4293013-4 (Version None)
Quarter: 2004Q1

REPORT INFORMATION
  Report Type: 
  Country: None (occurrence: None)
  Receive Date: 20040212
  Receipt Date: 20030811
  Transmission Date: 20041129
  Serious: No
  Sender: FDA-Public Use
  Company Number: US-GLAXOSMITHKLINE-A0420790A

PATIENT
  Age: 59 Year
  Sex: Female

DRUGS (4)
  1. PAXIL [Suspect]
     Indication: DEPRESSION
     Dosage: 40MG PER DAY
     Route: 048
     Dates: start: 19960101
  2. LOTREL [Concomitant]
  3. NEXIUM [Concomitant]
  4. VIOXX [Concomitant]

REACTIONS (3)
  - BLADDER DISORDER [None]
  - JAUNDICE [None]
  - LIVER FUNCTION TEST ABNORMAL [None]
